FAERS Safety Report 5637192-2 (Version None)
Quarter: 2008Q1

REPORT INFORMATION
  Report Type: 
  Country: None (occurrence: None)
  Receive Date: 20080221
  Receipt Date: 20080215
  Transmission Date: 20080703
  Serious: Yes (Death)
  Sender: FDA-Public Use
  Company Number: 163-21880-07120163

PATIENT
  Age: 83 Year
  Sex: Male

DRUGS (2)
  1. REVLIMID [Suspect]
     Indication: MYELODYSPLASTIC SYNDROME
     Dosage: 5 MG, DAILY FOR 28 DAYS, ORAL : 10 MG, DAILY FOR 28 DAYS, ORAL
     Route: 048
     Dates: start: 20071015, end: 20070101
  2. REVLIMID [Suspect]
     Indication: MYELODYSPLASTIC SYNDROME
     Dosage: 5 MG, DAILY FOR 28 DAYS, ORAL : 10 MG, DAILY FOR 28 DAYS, ORAL
     Route: 048
     Dates: start: 20070810, end: 20071001

REACTIONS (1)
  - INTESTINAL INFARCTION [None]
